FAERS Safety Report 10971622 (Version 2)
Quarter: 2015Q2

REPORT INFORMATION
  Report Type: Spontaneous
  Country: US (occurrence: US)
  Receive Date: 20150331
  Receipt Date: 20150612
  Transmission Date: 20150821
  Serious: No
  Sender: FDA-Public Use
  Company Number: US-GLAXOSMITHKLINE-US2015GSK041839

PATIENT
  Sex: Male

DRUGS (1)
  1. VOTRIENT [Suspect]
     Active Substance: PAZOPANIB HYDROCHLORIDE
     Indication: RENAL CANCER
     Dosage: 800 MG, QD
     Route: 065
     Dates: start: 20150122

REACTIONS (5)
  - Pain in extremity [Unknown]
  - Nausea [Unknown]
  - Abdominal distension [Unknown]
  - Abdominal discomfort [Unknown]
  - Fatigue [Unknown]
